FAERS Safety Report 7867344-2 (Version None)
Quarter: 2011Q4

REPORT INFORMATION
  Report Type: 
  Country: None (occurrence: None)
  Receive Date: 20111028
  Receipt Date: 20111024
  Transmission Date: 20120403
  Serious: Yes (Death, Hospitalization)
  Sender: FDA-Public Use
  Company Number: US-BRISTOL-MYERS SQUIBB COMPANY-14133615

PATIENT
  Age: 66 Year
  Sex: Female
  Weight: 61 kg

DRUGS (6)
  1. ERBITUX [Suspect]
     Indication: HEAD AND NECK CANCER
     Dosage: INFUSION STARTED ON 11FEB08
     Route: 042
     Dates: start: 20080211, end: 20080318
  2. COREG [Concomitant]
  3. NITROGLYCERIN [Concomitant]
  4. NORVASC [Concomitant]
  5. FUROSEMIDE [Concomitant]
  6. CISPLATIN [Suspect]
     Indication: HEAD AND NECK CANCER
     Dosage: DOSE STARTED ON 11FEB08
     Route: 042
     Dates: start: 20080211, end: 20080310

REACTIONS (6)
  - HYPOXIA [None]
  - RENAL FAILURE ACUTE [None]
  - MULTI-ORGAN FAILURE [None]
  - ANAEMIA [None]
  - MYOCARDIAL INFARCTION [None]
  - LEFT VENTRICULAR DYSFUNCTION [None]
